FAERS Safety Report 13458653 (Version 1)
Quarter: 2017Q2

REPORT INFORMATION
  Report Type: Spontaneous
  Country: US (occurrence: CA)
  Receive Date: 20170419
  Receipt Date: 20170419
  Transmission Date: 20170830
  Serious: Yes (Other)
  Sender: FDA-Public Use
  Company Number: CA-ROCHE-1914020

PATIENT
  Age: 5 Year
  Sex: Female

DRUGS (4)
  1. MYCOPHENOLATE MOFETIL. [Suspect]
     Active Substance: MYCOPHENOLATE MOFETIL
     Indication: IMMUNOSUPPRESSION
     Route: 065
  2. AZATHIOPRINE. [Suspect]
     Active Substance: AZATHIOPRINE
     Indication: IMMUNOSUPPRESSION
     Route: 065
  3. RAPAMUNE [Suspect]
     Active Substance: SIROLIMUS
     Indication: IMMUNOSUPPRESSION
     Route: 065
  4. PROGRAF [Suspect]
     Active Substance: TACROLIMUS\TACROLIMUS ANHYDROUS
     Indication: IMMUNOSUPPRESSION
     Route: 065

REACTIONS (10)
  - Rash pustular [Unknown]
  - Viral infection [Unknown]
  - Dermatitis acneiform [Unknown]
  - Anaemia [Recovering/Resolving]
  - Inflammatory pain [Unknown]
  - Rash papular [Unknown]
  - Renal impairment [Recovering/Resolving]
  - Alopecia [Unknown]
  - Diarrhoea [Unknown]
  - Trichodysplasia spinulosa [Recovering/Resolving]
